APPROVED DRUG PRODUCT: FAMOTIDINE
Active Ingredient: FAMOTIDINE
Strength: 40MG/5ML
Dosage Form/Route: FOR SUSPENSION;ORAL
Application: A216400 | Product #001 | TE Code: AB
Applicant: ALKEM LABORATORIES LTD
Approved: May 15, 2023 | RLD: No | RS: No | Type: RX